FAERS Safety Report 12083155 (Version 1)
Quarter: 2016Q1

REPORT INFORMATION
  Report Type: Spontaneous
  Country: US (occurrence: US)
  Receive Date: 20160217
  Receipt Date: 20160217
  Transmission Date: 20160526
  Serious: No
  Sender: FDA-Public Use
  Company Number: US-ASTRAZENECA-2016SE13627

PATIENT
  Age: 19904 Day
  Sex: Male
  Weight: 108 kg

DRUGS (5)
  1. MULTIPLE VITAMIN [Concomitant]
     Active Substance: VITAMINS
     Dosage: 1 DAILY
     Route: 048
  2. ASPERIN [Concomitant]
     Route: 048
  3. SYMBICORT [Suspect]
     Active Substance: BUDESONIDE\FORMOTEROL FUMARATE DIHYDRATE
     Indication: CHRONIC OBSTRUCTIVE PULMONARY DISEASE
     Dosage: 160/4.5 MCG 1-2  PUFFS DAILY
     Route: 055
  4. BENAZEPRIL [Concomitant]
     Active Substance: BENAZEPRIL HYDROCHLORIDE
     Indication: HYPERTENSION
     Route: 048
  5. AMOXIK-CLAV [Concomitant]
     Indication: BRONCHITIS
     Dosage: 1 TABLET TWICE A DAY
     Route: 048
     Dates: start: 20160203

REACTIONS (3)
  - Off label use [Unknown]
  - Drug dose omission [Unknown]
  - Bronchitis [Unknown]

NARRATIVE: CASE EVENT DATE: 20151031
